FAERS Safety Report 4963794-2 (Version None)
Quarter: 2006Q1

REPORT INFORMATION
  Report Type: 
  Country: None (occurrence: None)
  Receive Date: 20060330
  Receipt Date: 20060317
  Transmission Date: 20060701
  Serious: Yes (Hospitalization, Other)
  Sender: FDA-Public Use
  Company Number: 2006038325

PATIENT
  Sex: Female

DRUGS (6)
  1. DETROL LA [Suspect]
     Indication: HYPERTONIC BLADDER
     Dosage: (D)
  2. FUROSEMIDE [Suspect]
     Indication: OEDEMA PERIPHERAL
  3. ALL OTHER THERAPEUTIC PRODUCTS [Concomitant]
  4. INSULIN (INSULIN) [Concomitant]
  5. METFORMIN HCL [Concomitant]
  6. POTASSIUM (POTASSIUM) [Concomitant]

REACTIONS (7)
  - DISEASE RECURRENCE [None]
  - DRY MOUTH [None]
  - ERYTHEMA [None]
  - HEADACHE [None]
  - HYPERTONIC BLADDER [None]
  - OEDEMA PERIPHERAL [None]
  - URINARY INCONTINENCE [None]
